FAERS Safety Report 8329551-4 (Version None)
Quarter: 2012Q2

REPORT INFORMATION
  Report Type: 
  Country: None (occurrence: None)
  Receive Date: 20120502
  Receipt Date: 20120426
  Transmission Date: 20120825
  Serious: No
  Sender: FDA-Public Use
  Company Number: US-PFIZER INC-2012104248

PATIENT
  Sex: Female
  Weight: 52.154 kg

DRUGS (3)
  1. ZOLADEX [Concomitant]
     Indication: HORMONE THERAPY
     Dosage: UNK. EVERY 3 MONTHS
  2. AROMASIN [Suspect]
     Indication: PROPHYLAXIS
     Dosage: 25 MG, DAILY
     Dates: start: 20110501
  3. AROMASIN [Suspect]
     Dosage: 25 MG, DAILY
     Dates: start: 20110926

REACTIONS (1)
  - MUSCULOSKELETAL DISORDER [None]
